FAERS Safety Report 23339133 (Version 1)
Quarter: 2023Q4

REPORT INFORMATION
  Report Type: Spontaneous
  Country: US (occurrence: US)
  Receive Date: 20231226
  Receipt Date: 20231226
  Transmission Date: 20240110
  Serious: Yes (Other)
  Sender: FDA-Public Use
  Company Number: US-002147023-NVSC2023US267284

PATIENT
  Sex: Male

DRUGS (1)
  1. AFINITOR [Suspect]
     Active Substance: EVEROLIMUS
     Indication: Product used for unknown indication
     Dosage: 4 MG (2X 2MG, AT NIGHT)
     Route: 048

REACTIONS (3)
  - Tuberous sclerosis complex [Unknown]
  - Product dose omission issue [Unknown]
  - Product substitution issue [Unknown]
